FAERS Safety Report 4694926-1 (Version None)
Quarter: 2005Q2

REPORT INFORMATION
  Report Type: 
  Country: None (occurrence: None)
  Receive Date: 20050620
  Receipt Date: 20050607
  Transmission Date: 20051028
  Serious: Yes (Life-Threatening, Hospitalization)
  Sender: FDA-Public Use
  Company Number: GXKR2005US01214

PATIENT
  Age: 61 Year
  Sex: Male

DRUGS (4)
  1. NADOLOL [Suspect]
     Dosage: 40 MG, QD
  2. HYDROCHLOROTHIAZIDE [Suspect]
     Indication: OEDEMA
     Dosage: 12.5 MG, QD
  3. IRBESARTAN (NGX) [Suspect]
     Dosage: 300 MG, QD
  4. DILTIAZEM [Suspect]
     Dosage: 300 MG, QD

REACTIONS (9)
  - BLOOD CREATININE INCREASED [None]
  - BLOOD UREA INCREASED [None]
  - DISORIENTATION [None]
  - DRUG INTERACTION INHIBITION [None]
  - HAEMATOCRIT DECREASED [None]
  - HAEMOGLOBIN DECREASED [None]
  - HYPOTENSION [None]
  - LETHARGY [None]
  - SINUS ARREST [None]
